FAERS Safety Report 14266078 (Version 2)
Quarter: 2018Q1

REPORT INFORMATION
  Report Type: Spontaneous
  Country: JP (occurrence: JP)
  Receive Date: 20171209
  Receipt Date: 20180108
  Transmission Date: 20180508
  Serious: Yes (Hospitalization)
  Sender: FDA-Public Use
  Company Number: JP-UCBSA-2017016856

PATIENT
  Age: 32 Year
  Sex: Female
  Weight: 54 kg

DRUGS (7)
  1. NIFEDIPINE. [Concomitant]
     Active Substance: NIFEDIPINE
     Dosage: 40 MG, UNK
     Route: 048
     Dates: start: 20170831
  2. PREDONINE [Suspect]
     Active Substance: PREDNISOLONE
     Indication: RHEUMATOID ARTHRITIS
     Dosage: 5 MG, 2X/DAY (BID)
     Route: 048
     Dates: start: 20160322
  3. METHYLDOPA. [Concomitant]
     Active Substance: METHYLDOPA
     Indication: GESTATIONAL HYPERTENSION
     Dosage: 750 MG DAILY
     Dates: start: 201708
  4. NIFEDIPINE. [Concomitant]
     Active Substance: NIFEDIPINE
     Indication: BLOOD PRESSURE INCREASED
     Dosage: 20 MG, UNK
     Route: 048
     Dates: start: 20170828, end: 201708
  5. CIMZIA [Suspect]
     Active Substance: CERTOLIZUMAB PEGOL
     Indication: RHEUMATOID ARTHRITIS
     Dosage: UNK
     Route: 058
     Dates: start: 20170417
  6. NICARDIPINE [Concomitant]
     Active Substance: NICARDIPINE
     Indication: BLOOD PRESSURE INCREASED
     Dosage: UNK
     Route: 041
     Dates: start: 20170828, end: 20170829
  7. AZULFIDINE EN-TABS [Concomitant]
     Active Substance: SULFASALAZINE
     Indication: RHEUMATOID ARTHRITIS
     Dosage: 500 MG, 2X/DAY (BID)
     Route: 048
     Dates: start: 20120911

REACTIONS (3)
  - Exposure during pregnancy [Unknown]
  - Renal disorder in pregnancy [Recovering/Resolving]
  - Breast feeding [Unknown]

NARRATIVE: CASE EVENT DATE: 20170417
